FAERS Safety Report 14511198 (Version 8)
Quarter: 2018Q3

REPORT INFORMATION
  Report Type: Spontaneous
  Country: JP (occurrence: JP)
  Receive Date: 20180209
  Receipt Date: 20180730
  Transmission Date: 20181010
  Serious: Yes (Other)
  Sender: FDA-Public Use
  Company Number: JP-PFIZER INC-2018056971

PATIENT
  Age: 66 Year
  Sex: Female
  Weight: 40.5 kg

DRUGS (9)
  1. PIPERACILLIN AND TAZOBACTAM [Concomitant]
     Active Substance: PIPERACILLIN SODIUM\TAZOBACTAM SODIUM
     Indication: ENCEPHALOPATHY
  2. OXALIPLATIN. [Concomitant]
     Active Substance: OXALIPLATIN
     Indication: RECTAL CANCER
     Dosage: 110 MG, UNK (85 MG/M2, ONLY 1 COURSE )
     Route: 042
  3. 5?FLUOROURACIL [Suspect]
     Active Substance: FLUOROURACIL
     Indication: RECTAL CANCER
     Dosage: UNK (530; 400 MG/M2)
     Route: 042
  4. LEVOFOLINATE [Concomitant]
     Active Substance: LEVOLEUCOVORIN CALCIUM
     Indication: RECTAL CANCER
     Dosage: 265 MG, UNK (200 MG/M2)
     Route: 042
  5. FOLINIC ACID [Concomitant]
     Active Substance: LEUCOVORIN
     Indication: RECTAL CANCER
     Dosage: UNK (ONLY 1 COURSE)
  6. PIPERACILLIN AND TAZOBACTAM [Concomitant]
     Active Substance: PIPERACILLIN SODIUM\TAZOBACTAM SODIUM
     Indication: PELVIC ABSCESS
     Dosage: UNK
  7. CEFTRIAXONE. [Concomitant]
     Active Substance: CEFTRIAXONE
     Indication: HELICOBACTER INFECTION
     Dosage: UNK
  8. 5?FLUOROURACIL [Suspect]
     Active Substance: FLUOROURACIL
     Dosage: 3200 MG (2400 MG/M2, FOR 46 HOURS)
     Route: 042
  9. METRONIDAZOLE. [Suspect]
     Active Substance: METRONIDAZOLE
     Indication: HELICOBACTER INFECTION
     Dosage: UNK (TOTAL BODY EXPOSURE WAS 2 G)

REACTIONS (2)
  - Toxicity to various agents [Unknown]
  - Leukoencephalopathy [Unknown]
